FAERS Safety Report 5574822-8 (Version None)
Quarter: 2007Q4

REPORT INFORMATION
  Report Type: 
  Country: None (occurrence: None)
  Receive Date: 20071227
  Receipt Date: 20071221
  Transmission Date: 20080405
  Serious: Yes (Disabling)
  Sender: FDA-Public Use
  Company Number: US-ALLERGAN-0714127US

PATIENT
  Sex: Female

DRUGS (3)
  1. BOTOX COSMETIC [Suspect]
     Indication: SKIN WRINKLING
     Dosage: 30 UNITS, SINGLE
     Route: 030
     Dates: start: 20071210, end: 20071210
  2. BOTOX COSMETIC [Suspect]
     Dosage: 20 UNITS, SINGLE
     Dates: start: 20070823, end: 20070823
  3. BOTOX COSMETIC [Suspect]
     Dosage: 34 UNITS, SINGLE
     Dates: start: 20070405, end: 20070405

REACTIONS (2)
  - DYSSTASIA [None]
  - HEADACHE [None]
